FAERS Safety Report 15465029 (Version 1)
Quarter: 2018Q4

REPORT INFORMATION
  Report Type: Report from Study
  Country: BE (occurrence: BE)
  Receive Date: 20181004
  Receipt Date: 20181004
  Transmission Date: 20190204
  Serious: Yes (Hospitalization)
  Sender: FDA-Public Use
  Company Number: BE-TEVA-2018-BE-958985

PATIENT
  Age: 52 Year
  Sex: Female
  Weight: 79.6 kg

DRUGS (2)
  1. FREMANEZUMAB [Suspect]
     Active Substance: FREMANEZUMAB
     Indication: MIGRAINE
     Dosage: OL: ACTIVE TREATMENT PHASE:  FREMANEZUMAB 225MG MONTHLY
     Route: 058
     Dates: start: 20180704, end: 20180829
  2. FREMANEZUMAB [Suspect]
     Active Substance: FREMANEZUMAB
     Dosage: DB: FREMANEZUMAB 675MG OR 225MG OR 675MG FOLLOWED BY 225MG OR PLACEBO.
     Route: 058
     Dates: start: 20180411, end: 20180605

REACTIONS (1)
  - Multiple sclerosis [Recovered/Resolved]

NARRATIVE: CASE EVENT DATE: 20180917
